FAERS Safety Report 18371948 (Version 2)
Quarter: 2022Q1

REPORT INFORMATION
  Report Type: Spontaneous
  Country: CH (occurrence: CH)
  Receive Date: 20201012
  Receipt Date: 20220202
  Transmission Date: 20220423
  Serious: Yes (Death)
  Sender: FDA-Public Use
  Company Number: CH-SM-2020-15945

PATIENT
  Age: 58 Year
  Sex: Male

DRUGS (9)
  1. DOCETAXEL [Suspect]
     Active Substance: DOCETAXEL
     Indication: Neoplasm progression
     Route: 041
     Dates: start: 20200831, end: 20200831
  2. DOCETAXEL [Suspect]
     Active Substance: DOCETAXEL
     Dosage: DOSAGE ADAPTED ;
     Route: 041
     Dates: start: 201801, end: 201806
  3. HERCEPTIN [Suspect]
     Active Substance: TRASTUZUMAB
     Indication: Adenocarcinoma gastric
     Dosage: DOSAGE ADAPTED; COMBINED WITH 5 FLUOROURACIL/OXALIPLATINE/DOCETAXEL ;
     Route: 041
     Dates: start: 201801, end: 201806
  4. HERCEPTIN [Suspect]
     Active Substance: TRASTUZUMAB
     Route: 041
     Dates: start: 201807, end: 20200807
  5. HERCEPTIN [Suspect]
     Active Substance: TRASTUZUMAB
     Route: 041
     Dates: start: 20200831, end: 20200831
  6. FLUOROURACIL [Suspect]
     Active Substance: FLUOROURACIL
     Indication: Neoplasm progression
     Route: 041
     Dates: start: 20200831, end: 20200831
  7. FLUOROURACIL [Suspect]
     Active Substance: FLUOROURACIL
     Dosage: DOSAGE ADAPTED ;
     Route: 041
     Dates: start: 201801, end: 201806
  8. OXALIPLATIN [Suspect]
     Active Substance: OXALIPLATIN
     Indication: Neoplasm progression
     Route: 041
     Dates: start: 20200831, end: 20200831
  9. OXALIPLATIN [Suspect]
     Active Substance: OXALIPLATIN
     Route: 041
     Dates: start: 201801, end: 201806

REACTIONS (1)
  - Cardiac arrest [Fatal]
